FAERS Safety Report 6718428-3 (Version None)
Quarter: 2010Q2

REPORT INFORMATION
  Report Type: 
  Country: None (occurrence: None)
  Receive Date: 20100510
  Receipt Date: 20100506
  Transmission Date: 20101027
  Serious: Yes (Hospitalization)
  Sender: FDA-Public Use
  Company Number: JP-B.I. PHARMACEUTICALS,INC./RIDGEFIELD-2009-BP-10914NB

PATIENT
  Age: 7 Decade
  Sex: Male
  Weight: 49 kg

DRUGS (11)
  1. MICARDIS [Suspect]
     Indication: HYPERTENSION
     Dosage: 40 MG
     Route: 048
     Dates: start: 20060914, end: 20080220
  2. MICARDIS [Suspect]
     Dosage: 80 MG
     Route: 048
     Dates: start: 20080220
  3. LASIX [Suspect]
     Indication: CARDIAC FAILURE
     Dosage: 120 MG
     Route: 048
     Dates: start: 20080319
  4. NORVASC [Concomitant]
     Indication: HYPERTENSION
     Dosage: 5 MG
     Route: 048
     Dates: start: 20061220
  5. MEVALOTIN [Concomitant]
     Indication: HYPERLIPIDAEMIA
     Dosage: 10 MG
     Route: 048
     Dates: start: 20061220
  6. NOVORAPID MIX [Concomitant]
     Indication: DIABETES MELLITUS
     Route: 058
     Dates: start: 20080411
  7. NITOROL R [Concomitant]
     Indication: ANGINA PECTORIS
     Dosage: 40 MG
     Route: 048
     Dates: start: 20080521
  8. ASPIRIN [Concomitant]
     Indication: ANGINA PECTORIS
     Dosage: 100 MG
     Route: 048
     Dates: start: 20060715
  9. PANALDINE [Concomitant]
     Indication: PROPHYLAXIS
     Dosage: 200 MG
     Route: 048
     Dates: start: 20061002
  10. FRANDOL S [Concomitant]
     Indication: ANGINA PECTORIS
     Dosage: 40 MG
     Route: 062
     Dates: start: 20060715
  11. MYSLEE [Concomitant]
     Indication: INSOMNIA
     Dosage: 5 MG
     Route: 048
     Dates: start: 20060701

REACTIONS (3)
  - CARDIAC FAILURE [None]
  - DIABETIC NEPHROPATHY [None]
  - HYPERLIPIDAEMIA [None]
